FAERS Safety Report 16208387 (Version 2)
Quarter: 2019Q2

REPORT INFORMATION
  Report Type: Spontaneous
  Country: US (occurrence: US)
  Receive Date: 20190417
  Receipt Date: 20190514
  Transmission Date: 20190711
  Serious: No
  Sender: FDA-Public Use
  Company Number: US-IPSEN BIOPHARMACEUTICALS, INC.-2019-06159

PATIENT
  Age: 12 Year
  Sex: Male
  Weight: 33.6 kg

DRUGS (3)
  1. PROZAC [Concomitant]
     Active Substance: FLUOXETINE HYDROCHLORIDE
  2. INCRELEX [Suspect]
     Active Substance: MECASERMIN
     Indication: OFF LABEL USE
     Route: 058
     Dates: start: 201904
  3. INCRELEX [Suspect]
     Active Substance: MECASERMIN
     Indication: BODY HEIGHT BELOW NORMAL
     Dosage: 12 UNITS SUBCUTANEOUSLY TWICE A DAY ON DAYS 1 TO 7, 24 UNITS TWICE A DAY ON DAYS 8 TO 16, AND 36 UNI
     Route: 058
     Dates: start: 20190307, end: 201904

REACTIONS (3)
  - Off label use [Unknown]
  - Decreased appetite [Unknown]
  - Product dose omission [Unknown]

NARRATIVE: CASE EVENT DATE: 20190307
